FAERS Safety Report 7101546-8 (Version None)
Quarter: 2010Q4

REPORT INFORMATION
  Report Type: 
  Country: None (occurrence: None)
  Receive Date: 20101115
  Receipt Date: 20101109
  Transmission Date: 20110411
  Serious: Yes (Hospitalization)
  Sender: FDA-Public Use
  Company Number: FR-PFIZER INC-2010144274

PATIENT
  Age: 53 Year
  Sex: Female

DRUGS (7)
  1. SOLU-MEDROL [Suspect]
     Indication: LYMPHOEDEMA
     Dosage: 60 MG, 1X/DAY
     Route: 030
     Dates: start: 20100831
  2. ZYPREXA [Suspect]
     Indication: PSYCHOTIC DISORDER
     Dosage: 10 UNK, UNK
     Route: 048
     Dates: start: 20091001
  3. XELODA [Concomitant]
     Dosage: UNK
  4. LEVOTHYROXINE SODIUM [Concomitant]
     Dosage: UNK
  5. VASTAREL [Concomitant]
     Dosage: UNK
  6. LYRICA [Concomitant]
     Dosage: UNK
  7. ALDACTONE [Concomitant]
     Dosage: UNK

REACTIONS (3)
  - GENERAL PHYSICAL HEALTH DETERIORATION [None]
  - HYPERGLYCAEMIA [None]
  - KETOACIDOSIS [None]
